FAERS Safety Report 7130865-4 (Version None)
Quarter: 2010Q4

REPORT INFORMATION
  Report Type: 
  Country: None (occurrence: None)
  Receive Date: 20101201
  Receipt Date: 20101019
  Transmission Date: 20110411
  Serious: Yes (Other)
  Sender: FDA-Public Use
  Company Number: PHHY2010US70362

PATIENT
  Sex: Female

DRUGS (1)
  1. FEMARA [Suspect]
     Dosage: UNK

REACTIONS (5)
  - ERYTHEMA [None]
  - MASTECTOMY [None]
  - PRURITUS [None]
  - SKIN DISCOLOURATION [None]
  - SKIN IRRITATION [None]
